FAERS Safety Report 15710286 (Version 2)
Quarter: 2019Q2

REPORT INFORMATION
  Report Type: Spontaneous
  Country: US (occurrence: US)
  Receive Date: 20181211
  Receipt Date: 20190506
  Transmission Date: 20190711
  Serious: Yes (Other)
  Sender: FDA-Public Use
  Company Number: US-TAKEDA-2018TUS035352

PATIENT

DRUGS (19)
  1. PREVACID [Suspect]
     Active Substance: LANSOPRAZOLE
     Dosage: 30 UNK
     Route: 048
     Dates: start: 200801, end: 200904
  2. LANSOPRAZOLE. [Suspect]
     Active Substance: LANSOPRAZOLE
     Indication: GASTROOESOPHAGEAL REFLUX DISEASE
     Dosage: 30 UNK
     Route: 048
     Dates: start: 201107, end: 201201
  3. OMEPRAZOLE. [Suspect]
     Active Substance: OMEPRAZOLE
     Dosage: 20 UNK
     Route: 048
     Dates: start: 200612, end: 200705
  4. OMEPRAZOLE. [Suspect]
     Active Substance: OMEPRAZOLE
     Dosage: 20 UNK
     Route: 048
     Dates: start: 201506
  5. PROTONIX [Suspect]
     Active Substance: PANTOPRAZOLE SODIUM
     Indication: GASTROOESOPHAGEAL REFLUX DISEASE
     Dosage: 40 MILLIGRAM
     Route: 048
     Dates: start: 200602
  6. PANTOPRAZOLE [Suspect]
     Active Substance: PANTOPRAZOLE
     Indication: GASTROOESOPHAGEAL REFLUX DISEASE
     Dosage: UNK
     Route: 048
     Dates: start: 201103, end: 201106
  7. ISOSORBIDE. [Concomitant]
     Active Substance: ISOSORBIDE
     Indication: CARDIAC DISORDER
     Dosage: UNK
     Dates: start: 200602, end: 201506
  8. SYMBICORT [Concomitant]
     Active Substance: BUDESONIDE\FORMOTEROL FUMARATE DIHYDRATE
     Indication: ASTHMA
     Dosage: UNK
     Dates: start: 200906
  9. PREVACID [Suspect]
     Active Substance: LANSOPRAZOLE
     Dosage: 30 MILLIGRAM
     Route: 048
     Dates: start: 200909
  10. LANSOPRAZOLE. [Suspect]
     Active Substance: LANSOPRAZOLE
     Dosage: 30 MILLIGRAM
     Route: 048
     Dates: start: 201501, end: 201507
  11. OMEPRAZOLE. [Suspect]
     Active Substance: OMEPRAZOLE
     Dosage: 20 UNK
     Route: 048
     Dates: start: 201202, end: 201212
  12. PREVACID [Suspect]
     Active Substance: LANSOPRAZOLE
     Indication: GASTROOESOPHAGEAL REFLUX DISEASE
     Dosage: 30 MILLIGRAM
     Route: 048
     Dates: start: 200603
  13. ELIQUIS [Concomitant]
     Active Substance: APIXABAN
     Indication: ANTICOAGULANT THERAPY
     Dosage: UNK
     Dates: start: 201604, end: 201605
  14. PREVACID [Suspect]
     Active Substance: LANSOPRAZOLE
     Dosage: 30 MILLIGRAM
     Route: 048
     Dates: start: 200912, end: 201002
  15. PREVACID [Suspect]
     Active Substance: LANSOPRAZOLE
     Dosage: 30 UNK
     Route: 048
     Dates: start: 200708, end: 200801
  16. OMEPRAZOLE. [Suspect]
     Active Substance: OMEPRAZOLE
     Indication: GASTROOESOPHAGEAL REFLUX DISEASE
     Dosage: 20 MILLIGRAM
     Route: 048
     Dates: start: 200609
  17. LANSOPRAZOLE. [Suspect]
     Active Substance: LANSOPRAZOLE
     Dosage: 30 UNK
     Route: 048
     Dates: start: 201204, end: 201409
  18. HYDROCHLOROTHIAZIDE. [Concomitant]
     Active Substance: HYDROCHLOROTHIAZIDE
     Indication: HYPERTENSION
  19. PROAIR HFA [Concomitant]
     Active Substance: ALBUTEROL SULFATE
     Indication: ASTHMA
     Dosage: UNK
     Dates: start: 200804

REACTIONS (2)
  - Acute kidney injury [Unknown]
  - Chronic kidney disease [Unknown]

NARRATIVE: CASE EVENT DATE: 201001
